FAERS Safety Report 9176683 (Version 1)
Quarter: 2013Q1

REPORT INFORMATION
  Report Type: Spontaneous
  Country: BE (occurrence: BE)
  Receive Date: 20130321
  Receipt Date: 20130321
  Transmission Date: 20140127
  Serious: Yes (Other)
  Sender: FDA-Public Use
  Company Number: BE-009507513-1303BEL010002

PATIENT
  Age: 85 Year
  Sex: Female

DRUGS (7)
  1. FOSAMAX [Suspect]
     Indication: OSTEOPOROSIS
     Dosage: 70 MG, QW
     Route: 048
     Dates: start: 200812, end: 201209
  2. CORUNO [Concomitant]
  3. EMCONCOR [Concomitant]
  4. ASAFLOW [Concomitant]
  5. CYMBALTA [Concomitant]
  6. XANAX [Concomitant]
  7. TOTALIP [Concomitant]

REACTIONS (4)
  - Infection [Not Recovered/Not Resolved]
  - Anaesthesia [Not Recovered/Not Resolved]
  - Osteonecrosis of jaw [Not Recovered/Not Resolved]
  - Pain [Not Recovered/Not Resolved]
